FAERS Safety Report 18307176 (Version 1)
Quarter: 2020Q3

REPORT INFORMATION
  Report Type: Spontaneous
  Country: NL (occurrence: NL)
  Receive Date: 20200924
  Receipt Date: 20200924
  Transmission Date: 20201103
  Serious: Yes (Other)
  Sender: FDA-Public Use
  Company Number: NL-TEVA-2020-NL-1830105

PATIENT

DRUGS (4)
  1. LISINOPRIL TABLET 5MG / BRAND NAME NOT SPECIFIED [Suspect]
     Active Substance: LISINOPRIL
     Indication: PRODUCT USED FOR UNKNOWN INDICATION
     Dosage: THERAPY START DATE AND END DATE : ASKED BUT UNKNOWN
  2. PARACETAMOL/COFFEINE TABLET OMHULD 500/65MG / PANADOL PLUS GLADDE TABL [Suspect]
     Active Substance: ACETAMINOPHEN\CAFFEINE
     Indication: PRODUCT USED FOR UNKNOWN INDICATION
     Dosage: THERAPY START DATE AND END DATE : ASKED BUT UNKNOWN
  3. LEVOCETIRIZINE TABLET FO 5MG / LEVOCETIRIZINE DIHCL PCH TABLET FO 5MG [Suspect]
     Active Substance: LEVOCETIRIZINE DIHYDROCHLORIDE
     Indication: PRODUCT USED FOR UNKNOWN INDICATION
     Dosage: THERAPY START DATE AND END DATE : ASKED BUT UNKNOWN
  4. ARCOXIA [Suspect]
     Active Substance: ETORICOXIB
     Indication: PRODUCT USED FOR UNKNOWN INDICATION
     Dosage: THERAPY START DATE AND END DATE : ASKED BUT UNKNOWN

REACTIONS (11)
  - Micturition disorder [Unknown]
  - Rash [Unknown]
  - Musculoskeletal stiffness [Unknown]
  - Fatigue [Unknown]
  - Type III immune complex mediated reaction [Unknown]
  - Oedema [Unknown]
  - Nausea [Unknown]
  - Urticaria [Unknown]
  - Skin disorder [Unknown]
  - Type I hypersensitivity [Unknown]
  - Vomiting [Unknown]
